FAERS Safety Report 13372311 (Version 1)
Quarter: 2017Q1

REPORT INFORMATION
  Report Type: Spontaneous
  Country: US (occurrence: US)
  Receive Date: 20170327
  Receipt Date: 20170327
  Transmission Date: 20170429
  Serious: No
  Sender: FDA-Public Use
  Company Number: US-INTERPRAG-PM-OCA2017-00027

PATIENT

DRUGS (3)
  1. URSODIOL. [Concomitant]
     Active Substance: URSODIOL
  2. CYCLOSPORINE. [Concomitant]
     Active Substance: CYCLOSPORINE
  3. OCALIVA [Suspect]
     Active Substance: OBETICHOLIC ACID
     Indication: CHOLANGITIS

REACTIONS (2)
  - Scoliosis [Unknown]
  - Sjogren^s syndrome [Unknown]
